FAERS Safety Report 15590893 (Version 3)
Quarter: 2019Q1

REPORT INFORMATION
  Report Type: Spontaneous
  Country: US (occurrence: US)
  Receive Date: 20181106
  Receipt Date: 20190314
  Transmission Date: 20190417
  Serious: No
  Sender: FDA-Public Use
  Company Number: US-PFIZER INC-2018369008

PATIENT
  Age: 40 Year
  Sex: Male

DRUGS (1)
  1. SOMAVERT [Suspect]
     Active Substance: PEGVISOMANT
     Indication: ACROMEGALY
     Dosage: 10 MG, (INJECT 10 MG UNDER THE SKIN THREE TIMES A WEEK)

REACTIONS (8)
  - Flatulence [Unknown]
  - Mood swings [Unknown]
  - Fatigue [Unknown]
  - Diarrhoea [Unknown]
  - Nausea [Unknown]
  - Product use issue [Unknown]
  - Pain [Unknown]
  - Weight increased [Unknown]
